FAERS Safety Report 9157916 (Version 1)
Quarter: 2013Q1

REPORT INFORMATION
  Report Type: Spontaneous
  Country: SE (occurrence: SE)
  Receive Date: 20130312
  Receipt Date: 20130312
  Transmission Date: 20140127
  Serious: Yes (Hospitalization)
  Sender: FDA-Public Use
  Company Number: SE-ROCHE-1060646

PATIENT
  Age: 37 Year
  Sex: Female

DRUGS (5)
  1. AVASTIN [Suspect]
     Indication: PRODUCT USED FOR UNKNOWN INDICATION
     Route: 065
  2. XELODA [Suspect]
     Indication: PRODUCT USED FOR UNKNOWN INDICATION
     Route: 065
  3. FLUOROURACIL [Concomitant]
  4. LEUCOVORIN [Concomitant]
  5. IRINOTECAN [Concomitant]

REACTIONS (1)
  - Gastrointestinal perforation [Unknown]
